FAERS Safety Report 4776718-8 (Version None)
Quarter: 2005Q3

REPORT INFORMATION
  Report Type: 
  Country: None (occurrence: None)
  Receive Date: 20050923
  Receipt Date: 20050920
  Transmission Date: 20060218
  Serious: Yes (Hospitalization, Other)
  Sender: FDA-Public Use
  Company Number: NSADSS2001033182

PATIENT
  Sex: Male
  Weight: 72 kg

DRUGS (16)
  1. REMICADE [Suspect]
     Route: 041
     Dates: start: 20011009, end: 20011009
  2. REMICADE [Suspect]
     Indication: ANKYLOSING SPONDYLITIS
     Route: 041
     Dates: start: 20011009, end: 20011009
  3. METHOTREXATE [Concomitant]
     Route: 065
  4. CORTANCYL [Concomitant]
     Indication: ANKYLOSING SPONDYLITIS
     Route: 048
  5. CORTANCYL [Concomitant]
  6. PROPOFOL [Concomitant]
     Route: 048
  7. PROPOFOL [Concomitant]
     Route: 048
  8. PROPOFOL [Concomitant]
     Route: 048
  9. PROPOFOL [Concomitant]
     Route: 048
  10. PROPOFOL [Concomitant]
     Indication: ANKYLOSING SPONDYLITIS
     Route: 048
  11. TETRAZEPAM [Concomitant]
     Route: 048
  12. CALTRATE + D [Concomitant]
  13. CALTRATE + D [Concomitant]
  14. OMEPRAZOLE [Concomitant]
     Indication: ABDOMINAL PAIN
     Route: 048
  15. DEXTROPROPOXYPHEN [Concomitant]
  16. DISODIC ETIDRONATE [Concomitant]

REACTIONS (7)
  - DIZZINESS [None]
  - DRY MOUTH [None]
  - HEADACHE [None]
  - INTRACRANIAL VENOUS SINUS THROMBOSIS [None]
  - MYALGIA [None]
  - RASH PRURITIC [None]
  - VERTIGO [None]
